FAERS Safety Report 8116523-8 (Version None)
Quarter: 2012Q1

REPORT INFORMATION
  Report Type: 
  Country: None (occurrence: None)
  Receive Date: 20120206
  Receipt Date: 20120130
  Transmission Date: 20120608
  Serious: Yes (Hospitalization, Disabling)
  Sender: FDA-Public Use
  Company Number: US-BAYER-200927549NA

PATIENT
  Age: 23 Year
  Sex: Female
  Weight: 52.273 kg

DRUGS (14)
  1. IBUPROFEN (ADVIL) [Concomitant]
     Indication: DYSMENORRHOEA
  2. TRIAZ [Concomitant]
     Indication: ACNE
     Dates: start: 20070101
  3. DURAGEL [Concomitant]
     Indication: ACNE
     Dates: start: 20000101
  4. TAZORAC [Concomitant]
     Indication: ACNE
     Dates: start: 20000101
  5. RETIN-A [Concomitant]
     Indication: ACNE
     Dates: start: 20070101
  6. NAPROXEN (ALEVE) [Concomitant]
     Indication: HEADACHE
  7. NAPROXEN (ALEVE) [Concomitant]
     Indication: DYSMENORRHOEA
  8. YASMIN [Suspect]
     Indication: ACNE
     Dates: start: 20070101, end: 20070731
  9. AMPICILLIN [Concomitant]
     Indication: ACNE
     Dates: start: 20070101
  10. ASCORBIC ACID [Concomitant]
     Indication: FEELING COLD
  11. IBUPROFEN (ADVIL) [Concomitant]
     Indication: HEADACHE
  12. DOXYCYCLINE [Concomitant]
     Indication: ACNE
     Dosage: 200 MG (DAILY DOSE), BID,
  13. ANTI-ACNE PREPARATIONS [Concomitant]
     Indication: ACNE
     Dates: start: 20000101
  14. ARNICA [Concomitant]

REACTIONS (16)
  - PAIN [None]
  - CLUMSINESS [None]
  - GAIT DISTURBANCE [None]
  - GAIT SPASTIC [None]
  - ABASIA [None]
  - COGNITIVE DISORDER [None]
  - HEADACHE [None]
  - DYSARTHRIA [None]
  - VOMITING [None]
  - INJURY [None]
  - HEMIPLEGIA [None]
  - ASTHENIA [None]
  - EMOTIONAL DISORDER [None]
  - APHASIA [None]
  - DYSPRAXIA [None]
  - CEREBROVASCULAR ACCIDENT [None]
